FAERS Safety Report 4667048-3 (Version None)
Quarter: 2005Q2

REPORT INFORMATION
  Report Type: 
  Country: None (occurrence: None)
  Receive Date: 20050520
  Receipt Date: 20041007
  Transmission Date: 20051028
  Serious: Yes (Other)
  Sender: FDA-Public Use
  Company Number: PHEH2004US10787

PATIENT
  Age: 72 Year
  Sex: Female

DRUGS (39)
  1. ZOMETA [Suspect]
     Indication: BREAST CANCER METASTATIC
     Dosage: 4MG MONTHLY
     Dates: start: 20020208, end: 20031215
  2. AREDIA [Suspect]
     Indication: BREAST CANCER METASTATIC
     Dosage: 90MG MONTHLY
     Dates: start: 20040112, end: 20040729
  3. AREDIA [Suspect]
     Dosage: 90MG MONTHLY
     Dates: start: 20010125, end: 20020201
  4. COUMADIN [Concomitant]
     Dates: start: 20020426
  5. ARANESP [Concomitant]
  6. XELODA [Concomitant]
  7. FEMARA [Concomitant]
  8. VITAMIN B6 [Concomitant]
  9. SYNTHROID [Concomitant]
  10. TAMOXIFEN [Concomitant]
  11. DECADRON [Concomitant]
  12. BENADRYL ^WARNER-LAMBERT^               /USA/ [Concomitant]
  13. ATIVAN [Concomitant]
  14. ZOFRAN [Concomitant]
  15. COMPAZINE [Concomitant]
  16. INAPSINE [Concomitant]
  17. KYTRIL [Concomitant]
  18. METHOTREXATE [Concomitant]
  19. CYTOXAN [Concomitant]
  20. FLUOROURACIL [Concomitant]
  21. MS CONTIN [Concomitant]
  22. PERCOCET [Concomitant]
  23. RESTORIL [Concomitant]
  24. SENOKOT [Concomitant]
  25. ANZEMET [Concomitant]
  26. ZANTAC [Concomitant]
  27. TAXOL [Concomitant]
  28. NOVANTRONE [Concomitant]
  29. TAGAMET [Concomitant]
  30. NEUPOGEN [Concomitant]
  31. ARIMIDEX [Concomitant]
  32. TAXOTERE [Concomitant]
  33. LEUKINE [Concomitant]
  34. LACTULOSE [Concomitant]
  35. PEPCID [Concomitant]
  36. GEMZAR [Concomitant]
  37. NAVELBINE [Concomitant]
  38. CARBOPLATIN [Concomitant]
  39. EPOGEN [Concomitant]

REACTIONS (13)
  - ACTINOMYCOSIS [None]
  - BONE DEBRIDEMENT [None]
  - BONE DISORDER [None]
  - DISEASE PROGRESSION [None]
  - ORAL PAIN [None]
  - OSTEOMYELITIS [None]
  - OSTEONECROSIS [None]
  - PURULENCE [None]
  - SEQUESTRECTOMY [None]
  - SWELLING [None]
  - TOOTH ABSCESS [None]
  - TOOTH EXTRACTION [None]
  - TOOTHACHE [None]
